FAERS Safety Report 7962816-4 (Version None)
Quarter: 2011Q4

REPORT INFORMATION
  Report Type: 
  Country: None (occurrence: None)
  Receive Date: 20111207
  Receipt Date: 20111124
  Transmission Date: 20120403
  Serious: Yes (Hospitalization)
  Sender: FDA-Public Use
  Company Number: ES-MYLANLABS-2011S1024606

PATIENT
  Age: 83 Year
  Sex: Male

DRUGS (6)
  1. CHLORPROMAZINE [Concomitant]
     Route: 065
  2. INSULIN GLARGINE [Concomitant]
     Route: 065
  3. CITALOPRAM [Suspect]
     Indication: DEPRESSION
     Dosage: 20 MG/DAY
     Route: 065
  4. FUROSEMIDE [Concomitant]
     Route: 065
  5. BISOPROLOL [Concomitant]
     Route: 065
  6. ASPIRIN [Concomitant]
     Route: 065

REACTIONS (6)
  - BLOOD ALKALINE PHOSPHATASE INCREASED [None]
  - BLOOD LACTATE DEHYDROGENASE INCREASED [None]
  - HEPATOTOXICITY [None]
  - ALANINE AMINOTRANSFERASE INCREASED [None]
  - GAMMA-GLUTAMYLTRANSFERASE INCREASED [None]
  - ASPARTATE AMINOTRANSFERASE INCREASED [None]
